FAERS Safety Report 4781784-X (Version None)
Quarter: 2005Q3

REPORT INFORMATION
  Report Type: 
  Country: None (occurrence: None)
  Receive Date: 20050927
  Receipt Date: 20050916
  Transmission Date: 20060218
  Serious: Yes (Death)
  Sender: FDA-Public Use
  Company Number: 05H-163-0302519-00

PATIENT
  Age: 25 Week
  Sex: 0

DRUGS (6)
  1. SODIUM CHLORIDE 23.4% [Suspect]
     Dosage: DAY 1  OF LIFE
  2. HEPARIN [Concomitant]
  3. TPN (TPN) [Concomitant]
  4. INTRALIPID (INTRALIPID) [Concomitant]
  5. SODIUM ACETATE (SODIUM ACETATE) [Concomitant]
  6. SODIUM CHLORIDE 0.9% [Concomitant]

REACTIONS (6)
  - BRADYCARDIA NEONATAL [None]
  - HYPERNATRAEMIA [None]
  - MEDICATION ERROR [None]
  - NEONATAL DISORDER [None]
  - NEONATAL HYPOTENSION [None]
  - WRONG DRUG ADMINISTERED [None]
